FAERS Safety Report 25564787 (Version 1)
Quarter: 2025Q3

REPORT INFORMATION
  Report Type: Spontaneous
  Country: US (occurrence: None)
  Receive Date: 20250715
  Receipt Date: 20250715
  Transmission Date: 20251021
  Serious: Yes (Hospitalization)
  Sender: FDA-CTU
  Company Number: None

PATIENT
  Sex: Female

DRUGS (9)
  1. GAMMAGARD LIQUID [Suspect]
     Active Substance: HUMAN IMMUNOGLOBULIN G
     Indication: Complications of transplanted kidney
     Route: 042
     Dates: start: 20250417
  2. PREDNISONE [Concomitant]
     Active Substance: PREDNISONE
  3. HEPARIN L/L FLUSH SYR (5ML) [Concomitant]
  4. EPINEPHRINE AUTO-INJ [Concomitant]
  5. ACETAMINOPHEN [Concomitant]
     Active Substance: ACETAMINOPHEN
  6. CLONIDINE [Concomitant]
     Active Substance: CLONIDINE
  7. DIPHENHYDRAMINE (ALLERGY ) [Concomitant]
  8. HYDROXYZINE HYDROCHLORIDE [Concomitant]
     Active Substance: HYDROXYZINE HYDROCHLORIDE
  9. NORMAL SALINE FLUSH (5ML) [Concomitant]

REACTIONS (2)
  - Therapy interrupted [None]
  - Hypertensive crisis [None]
